FAERS Safety Report 16086366 (Version 1)
Quarter: 2019Q1

REPORT INFORMATION
  Report Type: Spontaneous
  Country: US (occurrence: US)
  Receive Date: 20190318
  Receipt Date: 20190318
  Transmission Date: 20190418
  Serious: Yes (Death)
  Sender: FDA-Public Use
  Company Number: US-ALLERGAN-1911244US

PATIENT
  Sex: Female

DRUGS (6)
  1. DILTIAZEM. [Suspect]
     Active Substance: DILTIAZEM
     Indication: COMPLETED SUICIDE
     Route: 048
  2. HYDROCODONE BITARTRATE;ACETAMINOPHEN UNK [Suspect]
     Active Substance: ACETAMINOPHEN\HYDROCODONE BITARTRATE
     Indication: COMPLETED SUICIDE
     Route: 048
  3. CLONIDINE. [Suspect]
     Active Substance: CLONIDINE
     Indication: COMPLETED SUICIDE
     Route: 048
  4. MARIJUANA [Suspect]
     Active Substance: CANNABIS SATIVA SUBSP. INDICA TOP
     Indication: COMPLETED SUICIDE
     Route: 048
  5. CLONAZEPAM. [Suspect]
     Active Substance: CLONAZEPAM
     Indication: COMPLETED SUICIDE
     Route: 048
  6. ALCOHOL. [Suspect]
     Active Substance: ALCOHOL
     Indication: COMPLETED SUICIDE
     Route: 048

REACTIONS (2)
  - Off label use [Unknown]
  - Completed suicide [Fatal]
